FAERS Safety Report 7225520-6 (Version None)
Quarter: 2011Q1

REPORT INFORMATION
  Report Type: 
  Country: None (occurrence: None)
  Receive Date: 20110113
  Receipt Date: 20110112
  Transmission Date: 20110831
  Serious: Yes (Hospitalization, Other)
  Sender: FDA-Public Use
  Company Number: JP-BAYER-2010-006477

PATIENT
  Age: 63 Year
  Sex: Male
  Weight: 57 kg

DRUGS (3)
  1. BARACLUDE [Concomitant]
     Dosage: UNK
     Route: 048
  2. LOXOPROFEN [Concomitant]
     Route: 065
  3. NEXAVAR [Suspect]
     Indication: HEPATIC NEOPLASM MALIGNANT
     Dosage: 200 MG, BID
     Route: 048
     Dates: start: 20100816, end: 20101216

REACTIONS (1)
  - HEPATIC FUNCTION ABNORMAL [None]
